FAERS Safety Report 24125921 (Version 1)
Quarter: 2024Q3

REPORT INFORMATION
  Report Type: Spontaneous
  Country: NL (occurrence: NL)
  Receive Date: 20240723
  Receipt Date: 20240723
  Transmission Date: 20241017
  Serious: Yes (Disabling)
  Sender: CHEPLAPHARM
  Company Number: None

PATIENT
  Age: 31 Year
  Sex: Female
  Weight: 78 kg

DRUGS (3)
  1. OLANZAPINE [Suspect]
     Active Substance: OLANZAPINE
     Indication: Psychotic disorder
     Dosage: 1X PER DAY 1 PIECE?DAILY DOSE: 15 MILLIGRAM
     Dates: start: 20240501
  2. OLANZAPINE [Suspect]
     Active Substance: OLANZAPINE
     Indication: Psychotic disorder
     Dosage: HAD PAST MEDICAL HISTORY
  3. MELATONIN [Concomitant]
     Active Substance: MELATONIN

REACTIONS (3)
  - Vulvovaginal burning sensation [Not Recovered/Not Resolved]
  - Vulvovaginal pruritus [Not Recovered/Not Resolved]
  - Vulval eczema [Unknown]
